FAERS Safety Report 4486893-0 (Version None)
Quarter: 2004Q3

REPORT INFORMATION
  Report Type: 
  Country: None (occurrence: None)
  Receive Date: 20040921
  Receipt Date: 20031002
  Transmission Date: 20050211
  Serious: Yes (Hospitalization)
  Sender: FDA-Public Use
  Company Number: 163-20785-03100149

PATIENT
  Age: 60 Year
  Sex: Male

DRUGS (5)
  1. THALOMID [Suspect]
     Indication: MULTIPLE MYELOMA
     Dosage: 400 MG, DAILY, ORAL
     Route: 048
     Dates: start: 20030604, end: 20030918
  2. DEXAMETHASONE [Suspect]
     Indication: MULTIPLE MYELOMA
     Dosage: 40 MG, ORAL
     Route: 048
     Dates: start: 20030915, end: 20030918
  3. CYTOXAN [Suspect]
     Indication: MULTIPLE MYELOMA
     Dosage: 708 MG, INTRAVENOUS
     Route: 042
     Dates: start: 20030915, end: 20030918
  4. ETOPOSIDE [Suspect]
     Indication: MULTIPLE MYELOMA
     Dosage: 71 MG, INTRAVENOUS
     Route: 042
     Dates: start: 20030915, end: 20030918
  5. CISPLATIN [Suspect]
     Indication: MULTIPLE MYELOMA
     Dosage: 18 MG, INTRAVENOUS
     Route: 042
     Dates: start: 20030915, end: 20030918

REACTIONS (3)
  - BACTERAEMIA [None]
  - CHILLS [None]
  - PYREXIA [None]
